FAERS Safety Report 11696092 (Version 2)
Quarter: 2015Q4

REPORT INFORMATION
  Report Type: Spontaneous
  Country: IT (occurrence: IT)
  Receive Date: 20151104
  Receipt Date: 20151130
  Transmission Date: 20160304
  Serious: Yes (Other)
  Sender: FDA-Public Use
  Company Number: IT-GE HEALTHCARE MEDICAL DIAGNOSTICS-OMPQ-PR-1510S-2952

PATIENT
  Age: 47 Year
  Sex: Male

DRUGS (2)
  1. OMNIPAQUE [Suspect]
     Active Substance: IOHEXOL
     Indication: DIAGNOSTIC PROCEDURE
  2. OMNIPAQUE [Suspect]
     Active Substance: IOHEXOL
     Indication: PRODUCT USED FOR UNKNOWN INDICATION
     Dosage: DOSE NOT REPORTED
     Route: 042
     Dates: start: 20151012, end: 20151012

REACTIONS (4)
  - Claustrophobia [Unknown]
  - Vomiting [Recovered/Resolved]
  - Hypertensive crisis [Recovered/Resolved]
  - Nausea [Recovered/Resolved]

NARRATIVE: CASE EVENT DATE: 20151012
